FAERS Safety Report 15629717 (Version 1)
Quarter: 2018Q4

REPORT INFORMATION
  Report Type: Spontaneous
  Country: US (occurrence: US)
  Receive Date: 20181117
  Receipt Date: 20181117
  Transmission Date: 20190205
  Serious: No
  Sender: FDA-Public Use
  Company Number: US-JNJFOC-20181014419

PATIENT
  Sex: Female

DRUGS (6)
  1. MOTRIN IB [Suspect]
     Active Substance: IBUPROFEN
     Indication: HEADACHE
     Dosage: FOR POST THYROID SURGERY
     Route: 065
     Dates: start: 20181004, end: 20181005
  2. MOTRIN IB [Suspect]
     Active Substance: IBUPROFEN
     Indication: HEADACHE
     Dosage: FOR BLISTERING/SPLITTING HEADACHE
     Route: 065
     Dates: start: 20181009
  3. MOTRIN IB [Suspect]
     Active Substance: IBUPROFEN
     Indication: PROCEDURAL PAIN
     Dosage: FOR POST THYROID SURGERY
     Route: 065
     Dates: start: 20181004, end: 20181005
  4. MOTRIN IB [Suspect]
     Active Substance: IBUPROFEN
     Indication: HEADACHE
     Dosage: FOR POST THYROID SURGERY
     Route: 065
     Dates: start: 20181006, end: 20181006
  5. MOTRIN IB [Suspect]
     Active Substance: IBUPROFEN
     Indication: PROCEDURAL PAIN
     Dosage: FOR BLISTERING/SPLITTING HEADACHE
     Route: 065
     Dates: start: 20181009
  6. MOTRIN IB [Suspect]
     Active Substance: IBUPROFEN
     Indication: PROCEDURAL PAIN
     Dosage: FOR POST THYROID SURGERY
     Route: 065
     Dates: start: 20181006, end: 20181006

REACTIONS (4)
  - Product use in unapproved indication [Unknown]
  - Headache [Unknown]
  - Off label use [Unknown]
  - Dizziness [Unknown]

NARRATIVE: CASE EVENT DATE: 20181004
